FAERS Safety Report 6424670-1 (Version None)
Quarter: 2009Q4

REPORT INFORMATION
  Report Type: 
  Country: None (occurrence: None)
  Receive Date: 20091102
  Receipt Date: 20091102
  Transmission Date: 20100525
  Serious: No
  Sender: FDA-Public Use
  Company Number: None

PATIENT
  Age: 70 Year
  Sex: Male

DRUGS (1)
  1. IOPROMIDE [Suspect]
     Indication: COMPUTERISED TOMOGRAM
     Dosage: 80 ML ONCE IV
     Route: 042
     Dates: start: 20081107, end: 20081107

REACTIONS (3)
  - PRURITUS [None]
  - RASH [None]
  - URTICARIA [None]
